FAERS Safety Report 5712061-8 (Version None)
Quarter: 2008Q2

REPORT INFORMATION
  Report Type: 
  Country: None (occurrence: None)
  Receive Date: 20080417
  Receipt Date: 20080414
  Transmission Date: 20081010
  Serious: Yes (Hospitalization)
  Sender: FDA-Public Use
  Company Number: 2005-09-1456

PATIENT
  Age: 68 Year
  Sex: Female

DRUGS (1)
  1. INTRON A [Suspect]
     Indication: MALIGNANT MELANOMA
     Dosage: 3 MIU; WK; SC
     Route: 058
     Dates: start: 20040801

REACTIONS (1)
  - BASEDOW'S DISEASE [None]
